FAERS Safety Report 19256098 (Version 5)
Quarter: 2021Q3

REPORT INFORMATION
  Report Type: Report from Study
  Country: FR (occurrence: FR)
  Receive Date: 20210513
  Receipt Date: 20210914
  Transmission Date: 20211014
  Serious: Yes (Hospitalization, Other)
  Sender: FDA-Public Use
  Company Number: FR-CELGENEUS-FRA-20210201139

PATIENT
  Age: 85 Year
  Sex: Female
  Weight: 40 kg

DRUGS (1)
  1. IDHIFA [Suspect]
     Active Substance: ENASIDENIB MESYLATE
     Indication: ACUTE MYELOID LEUKAEMIA
     Dosage: 100 MILLIGRAM
     Route: 048
     Dates: start: 20201218

REACTIONS (6)
  - General physical health deterioration [Unknown]
  - Asthenia [Not Recovered/Not Resolved]
  - Acute myeloid leukaemia [Unknown]
  - Eastern Cooperative Oncology Group performance status worsened [Unknown]
  - Cardiac failure [Recovered/Resolved]
  - Anaemia [Not Recovered/Not Resolved]

NARRATIVE: CASE EVENT DATE: 202012
